FAERS Safety Report 7393860-6 (Version None)
Quarter: 2011Q2

REPORT INFORMATION
  Report Type: 
  Country: None (occurrence: None)
  Receive Date: 20110405
  Receipt Date: 20110329
  Transmission Date: 20111010
  Serious: Yes (Hospitalization)
  Sender: FDA-Public Use
  Company Number: NL-ABBOTT-10P-114-0671136-00

PATIENT
  Sex: Female

DRUGS (2)
  1. METOJECT [Concomitant]
     Indication: PRODUCT USED FOR UNKNOWN INDICATION
     Dosage: 50MG/MLDISPOSABLESYRINGE0.2 ML, 10 MG/WK
     Dates: start: 20060101
  2. HUMIRA [Suspect]
     Indication: PSORIATIC ARTHROPATHY
     Route: 058
     Dates: start: 20080806, end: 20100901

REACTIONS (2)
  - DYSPNOEA [None]
  - VISUAL ACUITY REDUCED [None]
